FAERS Safety Report 5996415-0 (Version None)
Quarter: 2008Q4

REPORT INFORMATION
  Report Type: 
  Country: None (occurrence: None)
  Receive Date: 20081212
  Receipt Date: 20081017
  Transmission Date: 20090506
  Serious: No
  Sender: FDA-Public Use
  Company Number: US-ABBOTT-08P-163-0482298-00

PATIENT
  Sex: Female
  Weight: 65.83 kg

DRUGS (6)
  1. HUMIRA [Suspect]
     Indication: RHEUMATOID ARTHRITIS
     Route: 058
     Dates: start: 20080801
  2. METHOTREXATE [Concomitant]
     Indication: ARTHRITIS
     Route: 048
  3. ASTHMACORT INHALER [Concomitant]
     Indication: HYPERSENSITIVITY
     Route: 045
  4. TRIAMCINOLONE ACETONIDE [Concomitant]
     Indication: HYPERSENSITIVITY
     Dosage: 2 SPRAY EACH NARES DAILY
     Route: 045
  5. GLICLAZIDE [Concomitant]
     Indication: HYPERSENSITIVITY
     Route: 048
  6. PSEUDOEPHEDRINE HYDROCHLORIDE [Concomitant]
     Indication: HYPERSENSITIVITY
     Route: 048

REACTIONS (1)
  - SINUSITIS [None]
